FAERS Safety Report 5647337-6 (Version None)
Quarter: 2008Q1

REPORT INFORMATION
  Report Type: 
  Country: None (occurrence: None)
  Receive Date: 20080131
  Receipt Date: 20071101
  Transmission Date: 20080703
  Serious: No
  Sender: FDA-Public Use
  Company Number: 163-21880-07110153

PATIENT
  Age: 48 Year
  Sex: Female

DRUGS (7)
  1. REVLIMID [Suspect]
     Indication: MULTIPLE MYELOMA
     Dosage: 10 MG, DAILY, ORAL
     Route: 048
     Dates: start: 20070912
  2. LEVOTHYROXINE SODIUM [Concomitant]
  3. ACYCLOVIR [Concomitant]
  4. LEVAQUIN [Concomitant]
  5. DIFLUCAN [Concomitant]
  6. DEXAMETHASONE TAB [Concomitant]
  7. DURAGESIC-100 [Concomitant]

REACTIONS (2)
  - OEDEMA PERIPHERAL [None]
  - RASH [None]
